FAERS Safety Report 5549857-1 (Version None)
Quarter: 2007Q4

REPORT INFORMATION
  Report Type: 
  Country: None (occurrence: None)
  Receive Date: 20071212
  Receipt Date: 20071210
  Transmission Date: 20080405
  Serious: Yes (Hospitalization)
  Sender: FDA-Public Use
  Company Number: FR-BRISTOL-MYERS SQUIBB COMPANY-13937966

PATIENT
  Age: 91 Year
  Sex: Female

DRUGS (10)
  1. LOPRIL TABS [Suspect]
     Indication: HYPERTENSION
     Dates: start: 20070530, end: 20070718
  2. LASIX [Suspect]
     Indication: HYPERTENSION
     Dates: start: 20070530, end: 20070718
  3. REMINYL [Suspect]
     Dates: start: 20070416, end: 20070717
  4. DEROXAT [Suspect]
     Dosage: 1 TABLET PER DAY
     Dates: start: 20070626, end: 20070718
  5. CARDENSIEL [Concomitant]
     Dates: start: 20070530
  6. CORDARONE [Concomitant]
     Dates: start: 20070530
  7. KARDEGIC [Concomitant]
  8. SEROPRAM [Concomitant]
  9. LEVOTHYROX [Concomitant]
     Indication: HYPOTHYROIDISM
  10. ATARAX [Concomitant]

REACTIONS (2)
  - DEHYDRATION [None]
  - RENAL FAILURE [None]
